FAERS Safety Report 19405746 (Version 2)
Quarter: 2021Q3

REPORT INFORMATION
  Report Type: Spontaneous
  Country: US (occurrence: US)
  Receive Date: 20210611
  Receipt Date: 20210707
  Transmission Date: 20211014
  Serious: No
  Sender: FDA-Public Use
  Company Number: US-GW PHARMA-202106USGW02804

PATIENT

DRUGS (9)
  1. EPIDIOLEX [Suspect]
     Active Substance: CANNABIDIOL
     Indication: LENNOX-GASTAUT SYNDROME
     Dosage: 360 MILLIGRAM, BID
     Route: 048
  2. EPIDIOLEX [Suspect]
     Active Substance: CANNABIDIOL
     Indication: EPILEPSY
     Dosage: ANOTHER BATCH NUMBER
     Route: 048
     Dates: start: 2021
  3. EPIDIOLEX [Suspect]
     Active Substance: CANNABIDIOL
     Dosage: 360 MILLIGRAM, BID (TITRATING BACK )
     Route: 048
     Dates: start: 2021
  4. EPIDIOLEX [Suspect]
     Active Substance: CANNABIDIOL
     Indication: PARTIAL SEIZURES
     Dosage: ANOTHER BATCH NUMBER
     Route: 048
  5. EPIDIOLEX [Suspect]
     Active Substance: CANNABIDIOL
     Dosage: ANOTHER BATCH NUMBER
     Route: 048
  6. EPIDIOLEX [Suspect]
     Active Substance: CANNABIDIOL
     Dosage: ANOTHER BATCH NUMBER
     Route: 048
  7. EPIDIOLEX [Suspect]
     Active Substance: CANNABIDIOL
     Dosage: ANOTHER BATCH NUMBER
     Route: 048
  8. EPIDIOLEX [Suspect]
     Active Substance: CANNABIDIOL
     Indication: FOCAL DYSCOGNITIVE SEIZURES
     Dosage: 300 MILLIGRAM, BID
     Route: 048
  9. EPIDIOLEX [Suspect]
     Active Substance: CANNABIDIOL
     Dosage: ANOTHER BATCH NUMBER
     Route: 048

REACTIONS (3)
  - Seizure [Unknown]
  - Product supply issue [Unknown]
  - Diarrhoea [Unknown]
